FAERS Safety Report 9849533 (Version 1)
Quarter: 2014Q1

REPORT INFORMATION
  Report Type: Spontaneous
  Country: JP (occurrence: JP)
  Receive Date: 20140128
  Receipt Date: 20140128
  Transmission Date: 20141002
  Serious: Yes (Death)
  Sender: FDA-Public Use
  Company Number: JP-BAXTER-2014BAX002853

PATIENT
  Sex: Male

DRUGS (1)
  1. DIANEAL-N PD-4 2.5 [Suspect]
     Indication: RENAL FAILURE CHRONIC
     Route: 033
     Dates: end: 20140120

REACTIONS (1)
  - Cardiovascular disorder [Fatal]
